FAERS Safety Report 10606039 (Version 1)
Quarter: 2014Q4

REPORT INFORMATION
  Report Type: Report from Study
  Country: CA (occurrence: CA)
  Receive Date: 20141125
  Receipt Date: 20141125
  Transmission Date: 20150529
  Serious: Yes (Hospitalization)
  Sender: FDA-Public Use
  Company Number: CA-BIOGENIDEC-2014BI122778

PATIENT
  Age: 44 Year
  Sex: Male

DRUGS (1)
  1. FAMPYRA [Suspect]
     Active Substance: DALFAMPRIDINE
     Indication: GAIT DISTURBANCE
     Route: 048
     Dates: start: 20120518, end: 20141103

REACTIONS (3)
  - Vomiting [Recovered/Resolved]
  - Dehydration [Unknown]
  - Blood creatine increased [Recovered/Resolved]

NARRATIVE: CASE EVENT DATE: 20141103
